FAERS Safety Report 6007708-5 (Version None)
Quarter: 2008Q4

REPORT INFORMATION
  Report Type: 
  Country: None (occurrence: None)
  Receive Date: 20081217
  Receipt Date: 20080519
  Transmission Date: 20090506
  Serious: No
  Sender: FDA-Public Use
  Company Number: US-ASTRAZENECA-2008UW10279

PATIENT
  Age: 66 Year
  Sex: Female
  Weight: 65.3 kg

DRUGS (8)
  1. CRESTOR [Suspect]
     Indication: BLOOD CHOLESTEROL INCREASED
     Route: 048
     Dates: start: 20080401
  2. LEVOTHYROXINE SODIUM [Concomitant]
  3. CALCIUM [Concomitant]
  4. ASCORBIC ACID [Concomitant]
  5. VITAMIN B-12 [Concomitant]
  6. VITAMIN B6 [Concomitant]
  7. GLUCOSAMINE [Concomitant]
  8. ASPIRIN [Concomitant]

REACTIONS (7)
  - FATIGUE [None]
  - LETHARGY [None]
  - MUSCLE SPASMS [None]
  - MYALGIA [None]
  - NIGHT SWEATS [None]
  - PAIN IN EXTREMITY [None]
  - WEIGHT INCREASED [None]
